FAERS Safety Report 5500965-0 (Version None)
Quarter: 2007Q4

REPORT INFORMATION
  Report Type: 
  Country: None (occurrence: None)
  Receive Date: 20071029
  Receipt Date: 20071019
  Transmission Date: 20080405
  Serious: Yes (Other)
  Sender: FDA-Public Use
  Company Number: PHBS2007JP14581

PATIENT
  Age: 66 Year
  Sex: Female

DRUGS (4)
  1. ZOMETA [Suspect]
     Indication: METASTASES TO BONE
     Dosage: UNK, UNK
     Route: 042
     Dates: start: 20060101
  2. AREDIA [Suspect]
     Route: 042
  3. HERCEPTIN [Suspect]
     Indication: METASTASES TO BONE
     Route: 041
  4. FEMARA [Suspect]
     Indication: METASTASES TO BONE
     Dosage: 2.5 MG, UNK
     Route: 048

REACTIONS (3)
  - OSTEONECROSIS [None]
  - PERIODONTITIS [None]
  - PURULENCE [None]
